FAERS Safety Report 6067235-6 (Version None)
Quarter: 2009Q1

REPORT INFORMATION
  Report Type: 
  Country: None (occurrence: None)
  Receive Date: 20090205
  Receipt Date: 20090131
  Transmission Date: 20090719
  Serious: Yes (Death)
  Sender: FDA-Public Use
  Company Number: IN-BRISTOL-MYERS SQUIBB COMPANY-14490213

PATIENT
  Age: 63 Year
  Sex: Male

DRUGS (8)
  1. BLINDED: IPILIMUMAB [Suspect]
     Indication: LUNG NEOPLASM MALIGNANT
     Dosage: INITIATED ON 21NOV2008
     Route: 042
     Dates: start: 20090120, end: 20090120
  2. PACLITAXEL [Suspect]
     Indication: LUNG NEOPLASM MALIGNANT
     Dosage: INITIATED ON 21NOV2008
     Route: 042
     Dates: start: 20090120, end: 20090120
  3. CARBOPLATIN [Suspect]
     Indication: LUNG NEOPLASM MALIGNANT
     Dosage: INITIATED ON 21NOV2008
     Route: 042
     Dates: start: 20090120, end: 20090120
  4. BLINDED: PLACEBO [Suspect]
     Indication: LUNG NEOPLASM MALIGNANT
     Dosage: INITIATED ON 21NOV2008
     Route: 042
     Dates: start: 20090120, end: 20090120
  5. INSULIN [Concomitant]
     Dates: start: 20060101, end: 20090131
  6. ATENOLOL [Concomitant]
     Dates: start: 20030101, end: 20090131
  7. ECOSPRIN [Concomitant]
     Dates: start: 19970101, end: 20090131
  8. ISOSORBIDE DINITRATE [Concomitant]
     Dates: start: 19970101

REACTIONS (1)
  - NEUTROPENIC SEPSIS [None]
